FAERS Safety Report 11892968 (Version 3)
Quarter: 2016Q1

REPORT INFORMATION
  Report Type: Spontaneous
  Country: CA (occurrence: CA)
  Receive Date: 20160106
  Receipt Date: 20160108
  Transmission Date: 20160526
  Serious: Yes (Death, Other)
  Sender: FDA-Public Use
  Company Number: CA-BAXTER-2015BAX069036

PATIENT

DRUGS (3)
  1. 3.3% DEXTROSE AND 0.3% SODIUM CHLORIDE INJECTION [Suspect]
     Active Substance: DEXTROSE\SODIUM CHLORIDE
     Indication: FLUID REPLACEMENT
     Dosage: 2/3RD DEXTROSE, 1/3 SODIUM CHLORIDE
     Route: 042
  2. 3.3% DEXTROSE AND 0.3% SODIUM CHLORIDE INJECTION [Suspect]
     Active Substance: DEXTROSE\SODIUM CHLORIDE
     Dosage: 2/3RD DEXTROSE, 1/3 SODIUM CHLORIDE
     Route: 040
  3. LACTATED RINGERS [Suspect]
     Active Substance: CALCIUM CHLORIDE\POTASSIUM CHLORIDE\SODIUM CHLORIDE\SODIUM LACTATE
     Indication: FLUID REPLACEMENT
     Route: 042

REACTIONS (5)
  - Hyponatraemia [Fatal]
  - Brain oedema [Fatal]
  - Hypokalaemia [Unknown]
  - Drug prescribing error [Recovered/Resolved]
  - Cardiac arrest [Unknown]
